FAERS Safety Report 20848434 (Version 1)
Quarter: 2022Q2

REPORT INFORMATION
  Report Type: Report from Study
  Country: US (occurrence: US)
  Receive Date: 20220519
  Receipt Date: 20220519
  Transmission Date: 20220721
  Serious: Yes (Death)
  Sender: FDA-Public Use
  Company Number: US-BAYER-2022A070814

PATIENT
  Age: 68 Year
  Sex: Female

DRUGS (3)
  1. ADEMPAS [Suspect]
     Active Substance: RIOCIGUAT
     Indication: Pulmonary hypertension
     Dosage: UNK
  2. ADEMPAS [Suspect]
     Active Substance: RIOCIGUAT
     Indication: Idiopathic pulmonary fibrosis
     Dosage: 1 MG, TID
     Route: 048
     Dates: start: 202204, end: 2022
  3. ESBRIET [Concomitant]
     Active Substance: PIRFENIDONE
     Dosage: UNK

REACTIONS (2)
  - Death [Fatal]
  - Labelled drug-disease interaction medication error [None]

NARRATIVE: CASE EVENT DATE: 20220513
